FAERS Safety Report 25203404 (Version 1)
Quarter: 2025Q2

REPORT INFORMATION
  Report Type: Spontaneous
  Country: US (occurrence: None)
  Receive Date: 20250416
  Receipt Date: 20250416
  Transmission Date: 20250717
  Serious: Yes (Life-Threatening)
  Sender: FDA-CTU
  Company Number: None

PATIENT
  Age: 34 Year
  Sex: Female
  Weight: 58.5 kg

DRUGS (1)
  1. MONTELUKAST [Suspect]
     Active Substance: MONTELUKAST
     Indication: Asthma
     Dates: start: 20240311, end: 20250313

REACTIONS (6)
  - Suicidal ideation [None]
  - Crying [None]
  - Depression [None]
  - Confusional state [None]
  - Loss of personal independence in daily activities [None]
  - Thinking abnormal [None]

NARRATIVE: CASE EVENT DATE: 20240313
